FAERS Safety Report 21112281 (Version 4)
Quarter: 2022Q4

REPORT INFORMATION
  Report Type: Spontaneous
  Country: US (occurrence: US)
  Receive Date: 20220721
  Receipt Date: 20221108
  Transmission Date: 20230113
  Serious: No
  Sender: FDA-Public Use
  Company Number: US-DSJP-DSU-2022-125157AA

PATIENT
  Sex: Female

DRUGS (2)
  1. TURALIO [Suspect]
     Active Substance: PEXIDARTINIB HYDROCHLORIDE
     Indication: Giant cell tumour of tendon sheath
     Dosage: 200 MG
     Route: 048
     Dates: start: 20210622
  2. TURALIO [Suspect]
     Active Substance: PEXIDARTINIB HYDROCHLORIDE
     Dosage: 200 MG (2 CAPSULES IN THE MORNING AND 2 CAPSULES IN THE EVENING, 1 HOUR BEFORE MEALS OR 2 HOURS AFTE
     Route: 048

REACTIONS (2)
  - Pain [Unknown]
  - Product dose omission issue [Not Recovered/Not Resolved]
